FAERS Safety Report 6972892-3 (Version None)
Quarter: 2010Q3

REPORT INFORMATION
  Report Type: 
  Country: None (occurrence: None)
  Receive Date: 20100909
  Receipt Date: 20100901
  Transmission Date: 20110219
  Serious: Yes (Other)
  Sender: FDA-Public Use
  Company Number: US-PFIZER INC-2010111275

PATIENT
  Sex: Female
  Weight: 116.1 kg

DRUGS (3)
  1. DEPO-PROVERA [Suspect]
     Indication: OFF LABEL USE
     Dosage: UNK
     Dates: start: 20010101
  2. DEPO-PROVERA [Suspect]
     Indication: MENSTRUAL DISCOMFORT
  3. ORLISTAT [Concomitant]
     Indication: WEIGHT CONTROL
     Dosage: UNK
     Dates: start: 20100801

REACTIONS (1)
  - AMENORRHOEA [None]
